FAERS Safety Report 9693486 (Version 1)
Quarter: 2013Q4

REPORT INFORMATION
  Report Type: Spontaneous
  Country: US (occurrence: US)
  Receive Date: 20131118
  Receipt Date: 20131118
  Transmission Date: 20140711
  Serious: Yes (Hospitalization)
  Sender: FDA-Public Use
  Company Number: US-BAYER-2013-139835

PATIENT
  Age: 40 Year
  Sex: Female
  Weight: 106.58 kg

DRUGS (7)
  1. OCELLA [Suspect]
  2. VITAMIN D [Concomitant]
     Dosage: 20000 MG, UNK
     Route: 048
  3. ACETAMINOPHEN [Concomitant]
     Dosage: 500 MG, UNK
     Route: 048
  4. IBUPROFEN [Concomitant]
     Dosage: 200 MG, UNK
     Route: 048
  5. ALLEGRA [Concomitant]
     Dosage: 60 MG, UNK
  6. MOTRIN [Concomitant]
  7. ASPIRIN [Concomitant]

REACTIONS (2)
  - Deep vein thrombosis [None]
  - Thrombophlebitis superficial [None]
